FAERS Safety Report 24203925 (Version 1)
Quarter: 2024Q3

REPORT INFORMATION
  Report Type: Spontaneous
  Country: CN (occurrence: CN)
  Receive Date: 20240813
  Receipt Date: 20240813
  Transmission Date: 20241016
  Serious: Yes (Hospitalization, Other)
  Sender: ORGANON
  Company Number: CN-ORGANON-O2408CHN000665

PATIENT
  Age: 61 Year
  Sex: Male
  Weight: 65.6 kg

DRUGS (2)
  1. COZAAR [Suspect]
     Active Substance: LOSARTAN POTASSIUM
     Indication: Hypertension
     Dosage: 100 MG, QD, PO||
     Route: 048
     Dates: start: 20240727, end: 20240729
  2. BENIDIPINE HYDROCHLORIDE [Concomitant]
     Active Substance: BENIDIPINE HYDROCHLORIDE
     Indication: Hypertension
     Dosage: 8 MG, QD, PO||
     Route: 048
     Dates: start: 20240727, end: 20240729

REACTIONS (4)
  - Renal failure [Recovering/Resolving]
  - Renal injury [Unknown]
  - Abdominal distension [Unknown]
  - Blood creatinine increased [Recovering/Resolving]

NARRATIVE: CASE EVENT DATE: 20240729
